FAERS Safety Report 4411827-4 (Version None)
Quarter: 2004Q3

REPORT INFORMATION
  Report Type: 
  Country: None (occurrence: None)
  Receive Date: 20040729
  Receipt Date: 20040729
  Transmission Date: 20050211
  Serious: Yes (Hospitalization)
  Sender: FDA-Public Use
  Company Number: None

PATIENT
  Sex: Female
  Weight: 53.978 kg

DRUGS (8)
  1. GEMZAR [Suspect]
     Indication: PANCREATIC CARCINOMA
     Dosage: 650 MG/M2 Q WK X 3 Q 28 DAYS
     Dates: start: 20040708
  2. GEMZAR [Suspect]
     Indication: PANCREATIC CARCINOMA
     Dosage: 650 MG/M2 Q WK X 3 Q 28 DAYS
     Dates: start: 20040715
  3. GEMZAR [Suspect]
     Indication: PANCREATIC CARCINOMA
     Dosage: 650 MG/M2 Q WK X 3 Q 28 DAYS
     Dates: start: 20040722
  4. CELEBREX [Suspect]
     Indication: PANCREATIC CARCINOMA
     Dosage: 400 MG PO BID
     Route: 048
     Dates: start: 20040708, end: 20040727
  5. OXYCODONE HCL [Concomitant]
  6. MARINOL [Concomitant]
  7. COUMADIN [Concomitant]
  8. COMPAZINE [Concomitant]

REACTIONS (1)
  - HAEMOPTYSIS [None]
